FAERS Safety Report 19068666 (Version 1)
Quarter: 2021Q1

REPORT INFORMATION
  Report Type: Spontaneous
  Country: US (occurrence: US)
  Receive Date: 20210327
  Receipt Date: 20210327
  Transmission Date: 20210420
  Serious: Yes (Hospitalization)
  Sender: FDA-Public Use
  Company Number: None

PATIENT
  Age: 61 Year
  Sex: Male
  Weight: 109.8 kg

DRUGS (2)
  1. 5?FLUOROURACIL (5?FU) [Suspect]
     Active Substance: FLUOROURACIL
     Dates: end: 20210116
  2. CISPLATIN. [Suspect]
     Active Substance: CISPLATIN
     Dates: end: 20210113

REACTIONS (7)
  - Syncope [None]
  - Dizziness [None]
  - Adrenal insufficiency [None]
  - Aortic aneurysm [None]
  - Nausea [None]
  - Tremor [None]
  - Blood pressure increased [None]

NARRATIVE: CASE EVENT DATE: 20210312
